FAERS Safety Report 9237040 (Version 1)
Quarter: 2013Q2

REPORT INFORMATION
  Report Type: Spontaneous
  Country: US (occurrence: US)
  Receive Date: 20130417
  Receipt Date: 20130417
  Transmission Date: 20140414
  Serious: Yes (Other)
  Sender: FDA-Public Use
  Company Number: US-UCBSA-070182

PATIENT
  Age: 49 Year
  Sex: Female

DRUGS (4)
  1. VIMPAT [Suspect]
     Indication: CONVULSION
     Dosage: 125 MG AT 8 AM, 150 MG AT 2 PM, 8 PM AND MIDNIGHT.
     Dates: start: 2012
  2. VIMPAT [Suspect]
     Indication: CONVULSION
     Dosage: 150 ONCE A DAY 125 THREE TIMES A DAY
  3. KEPPRA [Suspect]
  4. TEGRETOL [Concomitant]

REACTIONS (5)
  - Brain neoplasm [Unknown]
  - Convulsion [Not Recovered/Not Resolved]
  - Dizziness [Recovering/Resolving]
  - Overdose [Unknown]
  - Drug ineffective [Unknown]
